FAERS Safety Report 7376907-2 (Version None)
Quarter: 2011Q1

REPORT INFORMATION
  Report Type: 
  Country: None (occurrence: None)
  Receive Date: 20110327
  Receipt Date: 20110322
  Transmission Date: 20110831
  Serious: Yes (Other)
  Sender: FDA-Public Use
  Company Number: GB-BRISTOL-MYERS SQUIBB COMPANY-15627110

PATIENT

DRUGS (1)
  1. ABILIFY [Suspect]

REACTIONS (1)
  - DIALYSIS [None]
